FAERS Safety Report 4994556-8 (Version None)
Quarter: 2006Q2

REPORT INFORMATION
  Report Type: 
  Country: None (occurrence: None)
  Receive Date: 20060505
  Receipt Date: 20060117
  Transmission Date: 20061013
  Serious: Yes (Hospitalization, Other)
  Sender: FDA-Public Use
  Company Number: US-MERCK-0601USA01960

PATIENT
  Age: 48 Year
  Sex: Female
  Weight: 91 kg

DRUGS (24)
  1. VIOXX [Suspect]
     Indication: OSTEOARTHRITIS
     Route: 048
     Dates: start: 20000320, end: 20040901
  2. NASONEX [Concomitant]
     Route: 065
  3. ALLEGRA [Concomitant]
     Route: 065
  4. PREMPRO [Concomitant]
     Route: 065
  5. FEMHRT [Concomitant]
     Route: 065
  6. AMOXICILLIN [Concomitant]
     Route: 065
  7. BIAXIN [Concomitant]
     Route: 065
  8. FENESIN [Concomitant]
     Route: 065
  9. LORABID [Concomitant]
     Route: 065
  10. ZOLOFT [Concomitant]
     Route: 065
  11. ALPRAZOLAM [Concomitant]
     Route: 065
  12. [THERAPY UNSPECIFIED] [Concomitant]
     Route: 065
  13. SULFAMETHOXAZOLE AND TRIMETHOPRIM [Concomitant]
     Route: 065
  14. FLONASE [Concomitant]
     Route: 065
  15. AUGMENTIN '125' [Concomitant]
     Route: 065
  16. NYSTATIN AND TRIAMCINOLONE ACETONIDE [Concomitant]
     Route: 065
  17. NEXIUM [Concomitant]
     Route: 065
  18. DETROL LA [Concomitant]
     Route: 065
  19. LEXAPRO [Concomitant]
     Route: 065
  20. DITROPAN XL [Concomitant]
     Route: 065
  21. ACETAMINOPHEN AND PROPOXYPHENE NAPSYLATE [Concomitant]
     Route: 065
  22. HYDROCODONE BITARTRATE AND IBUPROFEN [Concomitant]
     Route: 065
  23. ACETAMINOPHEN AND HYDROCODONE BITARTRATE [Concomitant]
     Route: 065
  24. BACTROBAN [Concomitant]
     Route: 065

REACTIONS (5)
  - BLOOD CHOLESTEROL INCREASED [None]
  - CEREBROVASCULAR ACCIDENT [None]
  - PLANTAR FASCIITIS [None]
  - ROTATOR CUFF SYNDROME [None]
  - TRANSIENT ISCHAEMIC ATTACK [None]
